FAERS Safety Report 13181786 (Version 3)
Quarter: 2020Q3

REPORT INFORMATION
  Report Type: Report from Study
  Country: DE (occurrence: DE)
  Receive Date: 20170202
  Receipt Date: 20180705
  Transmission Date: 20201104
  Serious: Yes (Hospitalization)
  Sender: FDA-Public Use
  Company Number: DE-JNJFOC-20170118471

PATIENT
  Age: 26 Year
  Sex: Female
  Weight: 52 kg

DRUGS (4)
  1. PLD [Suspect]
     Active Substance: DOXORUBICIN HYDROCHLORIDE
     Route: 042
  2. TRABECTEDIN [Suspect]
     Active Substance: TRABECTEDIN
     Route: 042
  3. TRABECTEDIN [Suspect]
     Active Substance: TRABECTEDIN
     Indication: OVARIAN CANCER
     Dosage: INTENDED/ADMINISTERED DOSE: 1.10 (UNITS UNSPECIFIED).
     Route: 042
     Dates: start: 20161107, end: 20161130
  4. PLD [Suspect]
     Active Substance: DOXORUBICIN HYDROCHLORIDE
     Indication: OVARIAN CANCER
     Dosage: INTENDED/ADMINISTERED DOSE: 30 (UNITS UNSPECIFIED).
     Route: 042
     Dates: start: 20161107, end: 20161130

REACTIONS (5)
  - Vascular device infection [Recovered/Resolved]
  - Thrombosis in device [Recovered/Resolved]
  - Abdominal pain [Not Recovered/Not Resolved]
  - Small intestinal obstruction [Not Recovered/Not Resolved]
  - Constipation [Recovered/Resolved]

NARRATIVE: CASE EVENT DATE: 20161116
